FAERS Safety Report 7248716-6 (Version None)
Quarter: 2011Q1

REPORT INFORMATION
  Report Type: 
  Country: None (occurrence: None)
  Receive Date: 20110121
  Receipt Date: 20110121
  Transmission Date: 20110831
  Serious: Yes (Hospitalization)
  Sender: FDA-Public Use
  Company Number: None

PATIENT
  Sex: Female
  Weight: 49.8957 kg

DRUGS (2)
  1. TETRACYCLINE [Concomitant]
  2. TIGECYCLINE [Suspect]
     Indication: CLOSTRIDIAL INFECTION
     Dosage: 50 MG IV Q 12 H
     Route: 042
     Dates: start: 20110113, end: 20110117

REACTIONS (2)
  - DOCUMENTED HYPERSENSITIVITY TO ADMINISTERED DRUG [None]
  - PLATELET COUNT DECREASED [None]
